FAERS Safety Report 9626113 (Version 3)
Quarter: 2014Q2

REPORT INFORMATION
  Report Type: Report from Study
  Country: US (occurrence: US)
  Receive Date: 20131016
  Receipt Date: 20140605
  Transmission Date: 20141212
  Serious: Yes (Hospitalization)
  Sender: FDA-Public Use
  Company Number: US-SA-2013SA100485

PATIENT
  Age: 60 Year
  Sex: Female
  Weight: 51.3 kg

DRUGS (12)
  1. RIFADIN [Suspect]
     Indication: PANCREATIC CARCINOMA METASTATIC
     Dosage: 600 MG, SINGLE DOSE DAY 16 THROUGH C2D1, ORAL
     Route: 048
     Dates: start: 20130726, end: 20130801
  2. CRIZOTINIB [Suspect]
     Indication: PANCREATIC CARCINOMA METASTATIC
     Route: 048
     Dates: start: 20130711, end: 20130801
  3. CRIZOTINIB [Suspect]
     Indication: PANCREATIC CARCINOMA METASTATIC
     Route: 065
     Dates: start: 20130808
  4. DILAUDID [Concomitant]
  5. LOVENOX [Concomitant]
  6. AMARYL [Concomitant]
  7. PREVACID [Concomitant]
  8. SYNTHROID [Concomitant]
  9. EMLA [Concomitant]
  10. REGLAN [Concomitant]
  11. ZOFRAN [Concomitant]
  12. OXYCONTIN [Concomitant]

REACTIONS (2)
  - Gastrooesophageal reflux disease [Recovered/Resolved]
  - Abdominal pain [Recovered/Resolved]
